FAERS Safety Report 13489702 (Version 1)
Quarter: 2017Q2

REPORT INFORMATION
  Report Type: Spontaneous
  Country: US (occurrence: US)
  Receive Date: 20170427
  Receipt Date: 20170427
  Transmission Date: 20170830
  Serious: No
  Sender: FDA-Public Use
  Company Number: US-BAYER-2017-080641

PATIENT
  Age: 58 Year
  Sex: Male

DRUGS (1)
  1. STAXYN [Suspect]
     Active Substance: VARDENAFIL HYDROCHLORIDE TRIHYDRATE
     Indication: ERECTILE DYSFUNCTION
     Dosage: 10 MG, ONCE
     Route: 048
     Dates: start: 20170425

REACTIONS (2)
  - Drug administration error [Unknown]
  - Incorrect route of drug administration [Unknown]

NARRATIVE: CASE EVENT DATE: 20170425
